FAERS Safety Report 14199870 (Version 1)
Quarter: 2017Q4

REPORT INFORMATION
  Report Type: Spontaneous
  Country: US (occurrence: US)
  Receive Date: 20171117
  Receipt Date: 20171117
  Transmission Date: 20180321
  Serious: No
  Sender: FDA-Public Use
  Company Number: US-BAUSCH-BL-2017-026150

PATIENT

DRUGS (1)
  1. XIFAXAN [Suspect]
     Active Substance: RIFAXIMIN
     Indication: BACTERIAL INFECTION
     Dosage: TWO 550 MG PILLS TWICE A DAY FOR 7 DAYS EVERY 3RD WEEK
     Route: 065
     Dates: start: 2008

REACTIONS (1)
  - Off label use [Unknown]

NARRATIVE: CASE EVENT DATE: 2008
